FAERS Safety Report 18735333 (Version 2)
Quarter: 2021Q1

REPORT INFORMATION
  Report Type: Spontaneous
  Country: FR (occurrence: FR)
  Receive Date: 20210113
  Receipt Date: 20210122
  Transmission Date: 20210419
  Serious: Yes (Hospitalization, Other)
  Sender: FDA-Public Use
  Company Number: FR-GLAXOSMITHKLINE-FR2021EME002837

PATIENT
  Sex: Female

DRUGS (4)
  1. LAMICTAL [Suspect]
     Active Substance: LAMOTRIGINE
     Dosage: UNK, 200
     Route: 048
     Dates: start: 202009, end: 202010
  2. LAMICTAL [Suspect]
     Active Substance: LAMOTRIGINE
     Dosage: UNK, 50
     Route: 048
     Dates: start: 202009, end: 202010
  3. LAMICTAL [Suspect]
     Active Substance: LAMOTRIGINE
     Indication: BIPOLAR DISORDER
     Dosage: 25 MG, 25, 2X100 AND 2X25/D
     Route: 048
     Dates: start: 2016, end: 20210106
  4. LAMICTAL [Suspect]
     Active Substance: LAMOTRIGINE
     Dosage: 25 MG, 100
     Route: 048
     Dates: start: 202012, end: 202012

REACTIONS (17)
  - Monoplegia [Unknown]
  - Dizziness [Unknown]
  - Palpitations [Unknown]
  - Epilepsy [Unknown]
  - Burning sensation [Unknown]
  - Urticaria [Unknown]
  - Seizure [Unknown]
  - Feeling abnormal [Unknown]
  - Hospitalisation [Unknown]
  - Tachycardia [Unknown]
  - Acne [Unknown]
  - Drug hypersensitivity [Unknown]
  - Fall [Unknown]
  - Blood glucose decreased [Unknown]
  - Visual impairment [Unknown]
  - Loss of consciousness [Unknown]
  - Headache [Unknown]

NARRATIVE: CASE EVENT DATE: 2020
